FAERS Safety Report 4400720-9 (Version None)
Quarter: 2004Q3

REPORT INFORMATION
  Report Type: 
  Country: None (occurrence: None)
  Receive Date: 20040716
  Receipt Date: 20040716
  Transmission Date: 20050211
  Serious: Yes (Hospitalization)
  Sender: FDA-Public Use
  Company Number: None

PATIENT
  Age: 77 Year
  Weight: 79.8 kg

DRUGS (1)
  1. VISIPAQUE [Suspect]
     Indication: STENT PLACEMENT
     Dosage: 365 ML IV
     Route: 042

REACTIONS (1)
  - BLOOD CREATININE INCREASED [None]
